FAERS Safety Report 8852242 (Version 1)
Quarter: 2012Q4

REPORT INFORMATION
  Report Type: 
  Country: US (occurrence: US)
  Receive Date: 20121022
  Receipt Date: 20121022
  Transmission Date: 20130627
  Serious: No
  Sender: FDA-Public Use
  Company Number: US-MYLANLABS-2011S1023102

PATIENT
  Age: 86 Year
  Sex: Male

DRUGS (22)
  1. CARVEDILOL [Suspect]
     Indication: BLOOD PRESSURE INCREASED
     Route: 048
     Dates: start: 2009
  2. CARVEDILOL [Suspect]
     Indication: CARDIAC DISORDER
     Route: 048
     Dates: start: 2009
  3. DILTIAZEM [Concomitant]
     Indication: CARDIAC DISORDER
     Route: 048
     Dates: start: 2009
  4. TOZAAR [Concomitant]
     Indication: CARDIAC DISORDER
     Route: 048
     Dates: start: 2009
  5. LASIX [Concomitant]
     Indication: FLUID RETENTION
     Route: 048
     Dates: start: 2001
  6. TERAZOSIN [Concomitant]
     Indication: URINARY RETENTION
     Route: 048
     Dates: start: 2002
  7. LEVOTHYROXINE [Concomitant]
     Indication: HYPOTHYROIDISM
     Route: 048
     Dates: start: 2002
  8. POTASSIUM [Concomitant]
     Indication: ELECTROLYTE SUBSTITUTION THERAPY
     Route: 048
     Dates: start: 2001
  9. SIMVASTATIN [Concomitant]
     Route: 048
     Dates: start: 2001
  10. ASPIRIN [Concomitant]
     Indication: CARDIAC DISORDER
     Route: 048
  11. FOLIC ACID [Concomitant]
     Route: 048
  12. VITAMIN B [Concomitant]
     Route: 048
  13. VITAMIN C [Concomitant]
     Route: 048
  14. ALBUTEROL [Concomitant]
     Indication: ASTHMA
     Dosage: 2 puffs prn
  15. SYMBICORT [Concomitant]
     Indication: ASTHMA
     Dates: start: 201105
  16. VITAMIN D3 [Concomitant]
  17. LORATADINE [Concomitant]
  18. CYANOCOBALAMIN [Concomitant]
  19. ASMANEX [Concomitant]
  20. FLUNISOLIDE [Concomitant]
     Dosage: 2 sprays in each nostril
  21. IPRATROPIUM BROMIDE W/SALBUTAMOL SULFATE [Concomitant]
  22. OXYGEN [Concomitant]

REACTIONS (4)
  - Drug ineffective [Recovered/Resolved]
  - Blood pressure increased [Recovered/Resolved]
  - Incorrect dose administered [Recovered/Resolved]
  - Constipation [Not Recovered/Not Resolved]
